FAERS Safety Report 8941450 (Version 1)
Quarter: 2012Q4

REPORT INFORMATION
  Report Type: 
  Country: IT (occurrence: IT)
  Receive Date: 20121203
  Receipt Date: 20121203
  Transmission Date: 20130627
  Serious: Yes (Hospitalization)
  Sender: FDA-Public Use
  Company Number: IT-TEVA-371866ISR

PATIENT
  Age: 71 Year
  Sex: Male

DRUGS (6)
  1. CARBOPLATINO [Suspect]
     Indication: PLEURAL MESOTHELIOMA
     Dosage: 330 Milligram Daily;
     Route: 042
     Dates: start: 20120802, end: 20121115
  2. ALIMTA [Concomitant]
     Indication: PLEURAL MESOTHELIOMA
     Dosage: 560 Milligram Daily;
     Route: 042
     Dates: start: 20120802, end: 20121115
  3. DOBETIN [Concomitant]
     Dosage: 1 Dosage forms Daily;
  4. LEXOTAN [Concomitant]
     Dosage: 30 Gtt Daily;
  5. STILNOX [Concomitant]
     Dosage: 1 Dosage forms Daily;
  6. SOLDESAM [Concomitant]
     Dosage: 64 Gtt Daily;

REACTIONS (3)
  - Hyperaemia [Recovered/Resolved]
  - Dysphonia [Recovered/Resolved]
  - Face oedema [Recovered/Resolved]
